FAERS Safety Report 6012464-0 (Version None)
Quarter: 2008Q4

REPORT INFORMATION
  Report Type: 
  Country: None (occurrence: None)
  Receive Date: 20081216
  Receipt Date: 20080604
  Transmission Date: 20090506
  Serious: Yes (Other)
  Sender: FDA-Public Use
  Company Number: US-WYE-H04380208

PATIENT
  Sex: Female

DRUGS (2)
  1. EFFEXOR XR [Suspect]
     Indication: DEPRESSION
     Dosage: DOSE INCREASED (DOSE UNKNOWN) THREE TIMES, 37.5 MG 1X PER 1 DAY, ORAL
     Route: 048
     Dates: start: 20060101, end: 20060101
  2. EFFEXOR XR [Suspect]
     Indication: DEPRESSION
     Dosage: DOSE INCREASED (DOSE UNKNOWN) THREE TIMES, 37.5 MG 1X PER 1 DAY, ORAL
     Route: 048
     Dates: start: 20060101, end: 20060101

REACTIONS (7)
  - FEELING HOT [None]
  - FEELING OF BODY TEMPERATURE CHANGE [None]
  - FORMICATION [None]
  - INSOMNIA [None]
  - PARAESTHESIA [None]
  - RESIDUAL URINE [None]
  - URINARY HESITATION [None]
